FAERS Safety Report 5155309-3 (Version None)
Quarter: 2006Q4

REPORT INFORMATION
  Report Type: 
  Country: None (occurrence: None)
  Receive Date: 20061121
  Receipt Date: 20061109
  Transmission Date: 20070319
  Serious: Yes (Hospitalization)
  Sender: FDA-Public Use
  Company Number: 2006CG01833

PATIENT
  Age: 50 Year
  Sex: Female

DRUGS (2)
  1. SYMBICORT [Suspect]
     Indication: ASTHMA
     Dosage: 360/9 ?G PER DOSE
     Route: 055
  2. BRICANYL [Suspect]
     Indication: ASTHMATIC CRISIS
     Route: 055

REACTIONS (3)
  - ASTHMATIC CRISIS [None]
  - INAPPROPRIATE SCHEDULE OF DRUG ADMINISTRATION [None]
  - MEDICATION ERROR [None]
